FAERS Safety Report 9759633 (Version 1)
Quarter: 2013Q4

REPORT INFORMATION
  Report Type: Spontaneous
  Country: US (occurrence: US)
  Receive Date: 20131216
  Receipt Date: 20131216
  Transmission Date: 20140711
  Serious: No
  Sender: FDA-Public Use
  Company Number: US-GILEAD-2010-0028470

PATIENT
  Sex: Female
  Weight: 81.65 kg

DRUGS (20)
  1. METOLAZONE [Concomitant]
  2. PROZAC [Concomitant]
  3. PLAQUENIL [Concomitant]
  4. LASIX [Concomitant]
  5. VIAGRA [Concomitant]
  6. LYRICA [Concomitant]
  7. CAPTOPRIL [Concomitant]
  8. FOLIC ACID [Concomitant]
  9. ACTONEL [Concomitant]
  10. FLONASE [Concomitant]
  11. THEOPHYLLINE [Concomitant]
  12. LETAIRIS [Suspect]
     Indication: PULMONARY ARTERIAL HYPERTENSION
     Route: 048
     Dates: start: 20071009
  13. SLOW FE [Concomitant]
  14. REVATIO [Concomitant]
  15. VICODIN [Concomitant]
  16. BUSPIRONE [Concomitant]
  17. ALENDRONATE [Concomitant]
  18. BECONASE [Concomitant]
  19. MUCINEX [Concomitant]
  20. ADCIRCA [Concomitant]

REACTIONS (1)
  - Chest pain [Unknown]
